FAERS Safety Report 10744565 (Version 1)
Quarter: 2015Q1

REPORT INFORMATION
  Report Type: Spontaneous
  Country: RU (occurrence: RU)
  Receive Date: 20150128
  Receipt Date: 20150128
  Transmission Date: 20150721
  Serious: Yes (Life-Threatening, Hospitalization)
  Sender: FDA-Public Use
  Company Number: RU-CELGENE-251-21880-14053090

PATIENT
  Age: 60 Year
  Sex: Female
  Weight: 51 kg

DRUGS (10)
  1. DEXAMETHASONE. [Suspect]
     Active Substance: DEXAMETHASONE
     Indication: PLASMA CELL MYELOMA
     Route: 048
     Dates: start: 20130416, end: 20140403
  2. REVLIMID [Suspect]
     Active Substance: LENALIDOMIDE
     Dosage: 100 MILLIGRAM
     Route: 048
     Dates: start: 20140611
  3. MLN9708 [Suspect]
     Active Substance: IXAZOMIB
     Indication: PLASMA CELL MYELOMA
     Route: 048
     Dates: start: 20130416, end: 20140403
  4. OMEPRAZOLE. [Concomitant]
     Active Substance: OMEPRAZOLE
     Indication: PROPHYLAXIS
     Dosage: 4 MILLIGRAM
     Route: 048
     Dates: start: 20130416, end: 20140327
  5. REVLIMID [Suspect]
     Active Substance: LENALIDOMIDE
     Indication: PLASMA CELL MYELOMA
     Route: 048
     Dates: start: 20130416, end: 20140330
  6. MLN9708 [Suspect]
     Active Substance: IXAZOMIB
     Dosage: 50 MILLIGRAM
     Route: 048
     Dates: start: 20140611
  7. DEXAMETHASONE. [Suspect]
     Active Substance: DEXAMETHASONE
     Route: 048
     Dates: start: 20140611
  8. LAPPACONITINE HYDROBROMIDE [Concomitant]
     Indication: PROPHYLAXIS
     Dosage: 60 MILLIGRAM
     Route: 048
     Dates: start: 201102, end: 20140826
  9. ACETYLSALICYLIC ACID [Concomitant]
     Active Substance: ASPIRIN
     Indication: PROPHYLAXIS
     Dosage: 40 MILLIGRAM
     Route: 048
     Dates: start: 201102, end: 20140329
  10. PAMIDRONIC ACID [Concomitant]
     Active Substance: PAMIDRONIC ACID
     Indication: BONE LESION
     Dosage: 1500 MILLILITER
     Route: 041
     Dates: start: 20130524, end: 20140320

REACTIONS (1)
  - Appendicitis [Recovered/Resolved]

NARRATIVE: CASE EVENT DATE: 20140330
